FAERS Safety Report 5564123-6 (Version None)
Quarter: 2007Q4

REPORT INFORMATION
  Report Type: 
  Country: None (occurrence: None)
  Receive Date: 20071217
  Receipt Date: 20071205
  Transmission Date: 20080405
  Serious: Yes (Other)
  Sender: FDA-Public Use
  Company Number: US-PFIZER INC-2007102658

PATIENT
  Sex: Female
  Weight: 55.454 kg

DRUGS (2)
  1. CALAN [Suspect]
     Indication: HYPERTENSION
     Route: 048
  2. PREDNISONE [Concomitant]

REACTIONS (2)
  - KNEE ARTHROPLASTY [None]
  - MYOCARDIAL INFARCTION [None]
